FAERS Safety Report 23887824 (Version 1)
Quarter: 2024Q2

REPORT INFORMATION
  Report Type: Spontaneous
  Country: US (occurrence: US)
  Receive Date: 20240523
  Receipt Date: 20240523
  Transmission Date: 20240716
  Serious: No
  Sender: FDA-Public Use
  Company Number: US-BRISTOL-MYERS SQUIBB COMPANY-2024-077286

PATIENT

DRUGS (1)
  1. ORENCIA [Suspect]
     Active Substance: ABATACEPT
     Indication: Product used for unknown indication
     Route: 042

REACTIONS (7)
  - Sensorimotor disorder [Unknown]
  - Balance disorder [Unknown]
  - Fall [Unknown]
  - Rheumatoid arthritis [Unknown]
  - Injury [Unknown]
  - Insurance issue [Unknown]
  - Therapy interrupted [Unknown]
